FAERS Safety Report 9896103 (Version 1)
Quarter: 2014Q1

REPORT INFORMATION
  Report Type: Spontaneous
  Country: US (occurrence: US)
  Receive Date: 20140213
  Receipt Date: 20140213
  Transmission Date: 20141002
  Serious: No
  Sender: FDA-Public Use
  Company Number: US-BRISTOL-MYERS SQUIBB COMPANY-19598150

PATIENT
  Age: 41 Year
  Sex: Female
  Weight: 68.03 kg

DRUGS (5)
  1. ABATACEPT SUBQ INJECTION 125MG/ML [Suspect]
     Indication: RHEUMATOID ARTHRITIS
     Route: 058
     Dates: start: 20130912
  2. MOTRIN [Concomitant]
  3. NEXIUM [Concomitant]
  4. VITAMIN D [Concomitant]
  5. ZYRTEC [Concomitant]

REACTIONS (1)
  - Injection site pain [Unknown]
